FAERS Safety Report 8420397-5 (Version None)
Quarter: 2012Q2

REPORT INFORMATION
  Report Type: 
  Country: None (occurrence: None)
  Receive Date: 20120607
  Receipt Date: 20120531
  Transmission Date: 20120825
  Serious: Yes (Hospitalization)
  Sender: FDA-Public Use
  Company Number: FR-MERCK-1106FRA00057

PATIENT
  Age: 62 Year
  Sex: Male
  Weight: 106 kg

DRUGS (19)
  1. HYDROCHLOROTHIAZIDE AND IRBESARTAN [Concomitant]
     Indication: HYPERTENSION
     Route: 065
     Dates: start: 20000101
  2. LIRAGLUTIDE [Concomitant]
     Route: 051
     Dates: start: 20110531
  3. PREGABALIN [Concomitant]
     Indication: DIABETIC NEUROPATHY
     Route: 065
     Dates: start: 20100101
  4. INSULIN GLARGINE [Suspect]
     Indication: TYPE 2 DIABETES MELLITUS
     Route: 051
     Dates: start: 20100315, end: 20110531
  5. GLICLAZIDE [Suspect]
     Route: 048
     Dates: start: 20100810, end: 20110531
  6. GLICLAZIDE [Suspect]
     Route: 048
  7. METFORMIN HYDROCHLORIDE AND PIOGLITAZONE HYDROCHLORIDE [Concomitant]
     Route: 048
     Dates: start: 20110531
  8. PIOGLITAZONE HYDROCHLORIDE [Concomitant]
     Route: 048
  9. JANUMET [Suspect]
     Indication: TYPE 2 DIABETES MELLITUS
     Route: 048
     Dates: start: 20100628, end: 20110531
  10. MIANSERIN HYDROCHLORIDE [Concomitant]
     Indication: DEPRESSION
     Route: 065
     Dates: start: 20000101
  11. ASPIRIN LYSINE [Concomitant]
     Route: 065
     Dates: start: 20000101
  12. ALPRAZOLAM [Concomitant]
     Indication: ANXIETY
     Route: 065
     Dates: start: 20000101
  13. GLICLAZIDE [Suspect]
     Indication: TYPE 2 DIABETES MELLITUS
     Route: 048
     Dates: start: 20100315, end: 20100810
  14. GLICLAZIDE [Suspect]
     Route: 048
  15. ALLOPURINOL [Concomitant]
     Indication: HYPERURICAEMIA
     Route: 065
     Dates: start: 20000101
  16. ROSUVASTATIN CALCIUM [Concomitant]
     Indication: HYPERLIPIDAEMIA
     Route: 065
     Dates: start: 20000101
  17. METFORMIN [Concomitant]
     Route: 048
  18. LIRAGLUTIDE [Concomitant]
     Route: 051
  19. METFORMIN [Concomitant]
     Indication: TYPE 2 DIABETES MELLITUS
     Route: 048

REACTIONS (3)
  - DIABETES MELLITUS INADEQUATE CONTROL [None]
  - PARONYCHIA [None]
  - VIRAL PERICARDITIS [None]
